FAERS Safety Report 7326366-0 (Version None)
Quarter: 2011Q1

REPORT INFORMATION
  Report Type: 
  Country: None (occurrence: None)
  Receive Date: 20110222
  Receipt Date: 20110208
  Transmission Date: 20110831
  Serious: Yes (Life-Threatening, Hospitalization, Other)
  Sender: FDA-Public Use
  Company Number: ALK_01555_2011

PATIENT
  Sex: Male
  Weight: 99.7913 kg

DRUGS (2)
  1. KLONOPIN [Concomitant]
  2. VIVITROL [Suspect]
     Indication: DRUG DEPENDENCE
     Dosage: (INTRAMUSCULAR)
     Route: 030
     Dates: start: 20110106

REACTIONS (3)
  - VOMITING [None]
  - COMA [None]
  - NAUSEA [None]
